FAERS Safety Report 24197139 (Version 2)
Quarter: 2024Q4

REPORT INFORMATION
  Report Type: Spontaneous
  Country: FR (occurrence: FR)
  Receive Date: 20240810
  Receipt Date: 20241004
  Transmission Date: 20250114
  Serious: Yes (Congenital Anomaly, Other)
  Sender: SANOFI AVENTIS
  Company Number: None

PATIENT
  Age: 24 Year
  Sex: Female
  Weight: 72 kg

DRUGS (3)
  1. DUPIXENT [Suspect]
     Active Substance: DUPILUMAB
     Indication: Dermatitis atopic
     Dosage: 1 DF, Q15D
     Route: 058
     Dates: start: 20240216, end: 20240514
  2. VALACYCLOVIR HYDROCHLORIDE [Suspect]
     Active Substance: VALACYCLOVIR HYDROCHLORIDE
     Indication: Eczema herpeticum
     Dosage: 1 G, QD
     Route: 048
     Dates: start: 202402, end: 20240216
  3. METHOTREXATE [Suspect]
     Active Substance: METHOTREXATE
     Indication: Dermatitis atopic
     Dosage: UNK
     Dates: start: 202307, end: 202309

REACTIONS (2)
  - Benign hydatidiform mole [Recovered/Resolved]
  - Exposure during pregnancy [Unknown]

NARRATIVE: CASE EVENT DATE: 20240501
